FAERS Safety Report 9920019 (Version 1)
Quarter: 2014Q1

REPORT INFORMATION
  Report Type: Spontaneous
  Country: US (occurrence: US)
  Receive Date: 20140224
  Receipt Date: 20140224
  Transmission Date: 20141002
  Serious: Yes (Hospitalization, Other)
  Sender: FDA-Public Use
  Company Number: US-TEVA-463783USA

PATIENT
  Age: 61 Year
  Sex: Female

DRUGS (1)
  1. GABAPENTIN [Suspect]
     Route: 065

REACTIONS (3)
  - Neurotoxicity [Recovering/Resolving]
  - Diabetic ketoacidosis [Recovering/Resolving]
  - Convulsion [Recovering/Resolving]
